FAERS Safety Report 4524609-X (Version None)
Quarter: 2004Q4

REPORT INFORMATION
  Report Type: 
  Country: None (occurrence: None)
  Receive Date: 20041117
  Receipt Date: 20031212
  Transmission Date: 20050328
  Serious: Yes (Hospitalization)
  Sender: FDA-Public Use
  Company Number: NSADSS2003014104

PATIENT
  Age: 70 Year
  Sex: Male

DRUGS (3)
  1. LEVAQUIN [Suspect]
     Indication: PNEUMONIA
     Dosage: 500 MG, 1 IN 1 DAY, ORAL
     Route: 048
     Dates: start: 20030318
  2. HYDROCHLOROTHIAZIDE [Concomitant]
  3. DOSTINEX [Concomitant]

REACTIONS (3)
  - CONVULSION [None]
  - STUPOR [None]
  - VISUAL DISTURBANCE [None]
